FAERS Safety Report 6371652-4 (Version None)
Quarter: 2009Q3

REPORT INFORMATION
  Report Type: 
  Country: None (occurrence: None)
  Receive Date: 20090923
  Receipt Date: 20080320
  Transmission Date: 20100115
  Serious: Yes (Other)
  Sender: FDA-Public Use
  Company Number: US-ASTRAZENECA-2008UW01154

PATIENT
  Age: 10979 Day
  Sex: Male
  Weight: 114.3 kg

DRUGS (7)
  1. SEROQUEL [Suspect]
     Indication: ANXIETY
     Route: 048
     Dates: start: 20060801, end: 20071201
  2. SEROQUEL [Suspect]
     Indication: DEPRESSION
     Route: 048
     Dates: start: 20060801, end: 20071201
  3. GLUCOTROL XL [Concomitant]
     Dosage: 10 MG QD INCREASED TO 10 MG TWICE A DAY
     Route: 048
  4. METFORMIN HCL [Concomitant]
     Dosage: TITRATED FROM 500 TO 800 TO 850 MG TWICE A DAY
  5. LIPITOR [Concomitant]
     Dosage: DOSE INCREASED FROM 10 MG TO 20 MG QD
  6. ACCUPRIL [Concomitant]
     Dosage: 10-20 MG QD
     Route: 048
  7. PREDNISONE [Concomitant]
     Dosage: 10-30 MG QD
     Route: 048

REACTIONS (2)
  - DIABETES MELLITUS [None]
  - DIABETES MELLITUS INADEQUATE CONTROL [None]
